FAERS Safety Report 6896859 (Version 2)
Quarter: 2017Q3

REPORT INFORMATION
  Report Type: Spontaneous
  Country: AU (occurrence: AU)
  Receive Date: 20090130
  Receipt Date: 20170809
  Transmission Date: 20171128
  Serious: Yes (Other)
  Sender: FDA-Public Use
  Company Number: AU-PFIZER INC-2008156545

PATIENT
  Age: 30 Year
  Sex: Female
  Weight: 83 kg

DRUGS (2)
  1. CYTOTEC [Suspect]
     Active Substance: MISOPROSTOL
     Indication: DELIVERY
     Dosage: 800 UG, 1X/DAY
     Dates: start: 20070719, end: 20070719
  2. ERGOMETRINE MALEATE [Suspect]
     Active Substance: ERGONOVINE MALEATE
     Indication: DELIVERY
     Dosage: 500 MG, 1X/DAY
     Dates: start: 20070719, end: 20070719

REACTIONS (4)
  - Pyrexia [Recovered/Resolved]
  - Paraesthesia oral [Recovered/Resolved]
  - Oxygen saturation decreased [Recovered/Resolved]
  - Resting tremor [None]

NARRATIVE: CASE EVENT DATE: 20070719
